FAERS Safety Report 8069723-X (Version None)
Quarter: 2012Q1

REPORT INFORMATION
  Report Type: 
  Country: None (occurrence: None)
  Receive Date: 20120125
  Receipt Date: 20110504
  Transmission Date: 20120608
  Serious: Yes (Other)
  Sender: FDA-Public Use
  Company Number: US-PFIZER INC-2011US-44212

PATIENT
  Age: 88 Year
  Sex: Male

DRUGS (7)
  1. ACETYLSALICYLIC ACID [Concomitant]
  2. VALSARTAN [Concomitant]
  3. ATORVASTATIN CALCIUM [Concomitant]
  4. MOVIPREP [Concomitant]
  5. ALENDRONATE SODIUM [Concomitant]
  6. VERAPAMIL HCL [Suspect]
     Dosage: UNK
     Route: 065
     Dates: end: 20101230
  7. FLUTICASONE PROPIONATE [Concomitant]

REACTIONS (3)
  - CONSTIPATION [None]
  - BRADYCARDIA [None]
  - ATRIOVENTRICULAR BLOCK [None]
